FAERS Safety Report 6296551-8 (Version None)
Quarter: 2009Q3

REPORT INFORMATION
  Report Type: 
  Country: None (occurrence: None)
  Receive Date: 20090804
  Receipt Date: 20090721
  Transmission Date: 20100115
  Serious: Yes (Hospitalization, Other)
  Sender: FDA-Public Use
  Company Number: US-ELI_LILLY_AND_COMPANY-US200907004574

PATIENT
  Sex: Female

DRUGS (5)
  1. FORTEO [Suspect]
     Indication: OSTEOPOROSIS
     Dosage: 20 UG, DAILY (1/D)
     Route: 058
     Dates: start: 20090702, end: 20090715
  2. DIOVAN [Concomitant]
     Indication: BLOOD PRESSURE
     Dosage: 160 MG, DAILY (1/D)
     Dates: end: 20090711
  3. COUMADIN [Concomitant]
     Indication: ANTICOAGULANT THERAPY
     Dates: end: 20090701
  4. COUMADIN [Concomitant]
     Dates: start: 20090701
  5. CYMBALTA [Concomitant]
     Indication: DEPRESSION

REACTIONS (2)
  - HYPOTENSION [None]
  - INTERNATIONAL NORMALISED RATIO INCREASED [None]
